FAERS Safety Report 14565558 (Version 15)
Quarter: 2018Q4

REPORT INFORMATION
  Report Type: Spontaneous
  Country: PL (occurrence: PL)
  Receive Date: 20180223
  Receipt Date: 20181006
  Transmission Date: 20190204
  Serious: Yes (Death, Hospitalization, Other)
  Sender: FDA-Public Use
  Company Number: PL-AUROBINDO-AUR-APL-2018-008848

PATIENT
  Age: 56 Year
  Sex: Female

DRUGS (30)
  1. ETOPOSIDE. [Suspect]
     Active Substance: ETOPOSIDE
     Indication: PLASMA CELL MYELOMA
  2. DOXORUBICIN [Suspect]
     Active Substance: DOXORUBICIN
     Indication: PLASMA CELL MYELOMA
     Dosage: UNK UNK, CYCLICAL
     Route: 065
  3. THALIDOMIDE [Suspect]
     Active Substance: THALIDOMIDE
     Indication: CHEMOTHERAPY
     Dosage: CTD REGIMEN
     Route: 065
  4. CYCLOPHOSPHAMIDE. [Suspect]
     Active Substance: CYCLOPHOSPHAMIDE
     Indication: PLASMA CELL MYELOMA
     Dosage: UNK, QCYCLE; UNSPECIFIED, CTD REGIMEN ()
     Route: 065
  5. DEXAMETHASONE. [Suspect]
     Active Substance: DEXAMETHASONE
     Indication: PLASMA CELL MYELOMA
     Dosage: CTD REGIMEN
     Route: 065
  6. ENDOXANA [Suspect]
     Active Substance: CYCLOPHOSPHAMIDE
     Dosage: UNK UNK, CYCLICAL
     Route: 065
  7. BORTEZOMIB. [Suspect]
     Active Substance: BORTEZOMIB
     Indication: PLASMA CELL MYELOMA
     Dosage: CYCLIC (VD-PACE) (2 CYCLES) ()
     Route: 065
  8. MELPHALAN. [Suspect]
     Active Substance: MELPHALAN
     Indication: PLASMA CELL MYELOMA
     Dosage: 120 MG
     Route: 065
  9. LENALIDOMIDE [Suspect]
     Active Substance: LENALIDOMIDE
     Indication: PLASMA CELL MYELOMA
     Dosage: UNK, QCYCLE; DOSAGE FORM: UNSPECIFIED
     Route: 065
  10. THALIDOMIDE [Suspect]
     Active Substance: THALIDOMIDE
     Dosage: UNK UNK, UNKNOWN FREQ.
     Route: 065
  11. CISPLATIN. [Suspect]
     Active Substance: CISPLATIN
     Indication: CHEMOTHERAPY
     Dosage: UNK, QCYCLE; UNSPECIFIED, VD-PACE
     Route: 065
  12. MICAFUNGIN. [Suspect]
     Active Substance: MICAFUNGIN SODIUM
     Dosage: 200 MILLIGRAM, ONCE A DAY
     Route: 065
  13. DEXAMETHASONE. [Suspect]
     Active Substance: DEXAMETHASONE
     Indication: CHEMOTHERAPY
     Dosage: UNK UNK, QCYCLE
     Route: 065
  14. CISPLATIN. [Suspect]
     Active Substance: CISPLATIN
     Indication: PLASMA CELL MYELOMA
  15. DEXAMETHASONE. [Suspect]
     Active Substance: DEXAMETHASONE
     Dosage: CYCLIC (VD-PACE)
     Route: 065
  16. BORTEZOMIB. [Suspect]
     Active Substance: BORTEZOMIB
     Indication: CHEMOTHERAPY
     Dosage: QCYCLE; UNSPECIFIED, CTD REGIMEN; DOSAGE FORM: UNSPECIFIED, VD-PACE
     Route: 065
  17. BENDAMUSTINE [Suspect]
     Active Substance: BENDAMUSTINE
     Indication: PLASMA CELL MYELOMA
     Dosage: UNK UNK, QCYCLE
     Route: 042
  18. DOXORUBICIN [Suspect]
     Active Substance: DOXORUBICIN
     Indication: CHEMOTHERAPY
     Dosage: VD-PACE
     Route: 065
  19. ENDOXANA [Suspect]
     Active Substance: CYCLOPHOSPHAMIDE
     Indication: PLASMA CELL MYELOMA
     Dosage: VD-PACE
     Route: 065
  20. ENDOXANA [Suspect]
     Active Substance: CYCLOPHOSPHAMIDE
     Indication: CHEMOTHERAPY
     Dosage: CTD REGIMEN
     Route: 065
  21. CYCLOPHOSPHAMIDE. [Suspect]
     Active Substance: CYCLOPHOSPHAMIDE
     Indication: CHEMOTHERAPY
     Dosage: UNK, QCYCLE; UNSPECIFIED, CTD REGIMEN
     Route: 065
  22. CISPLATIN. [Suspect]
     Active Substance: CISPLATIN
     Indication: PLASMA CELL MYELOMA
     Dosage: VD-PACE
     Route: 065
  23. IMMUNOGLOBULIN                     /00025201/ [Suspect]
     Active Substance: HUMAN IMMUNOGLOBULIN G
     Indication: PRODUCT USED FOR UNKNOWN INDICATION
     Dosage: UNK
     Route: 065
  24. FLUCONAZOLE. [Suspect]
     Active Substance: FLUCONAZOLE
     Indication: PRODUCT USED FOR UNKNOWN INDICATION
     Dosage: UNK
     Route: 065
  25. MELPHALAN. [Suspect]
     Active Substance: MELPHALAN
     Dosage: 120 MG, UNKNOWN FREQ. (HIGH DOSE)
     Route: 065
  26. CYCLOPHOSPHAMIDE. [Suspect]
     Active Substance: CYCLOPHOSPHAMIDE
     Indication: PLASMA CELL MYELOMA
  27. MICAFUNGIN. [Suspect]
     Active Substance: MICAFUNGIN SODIUM
     Indication: CANDIDA INFECTION
     Dosage: 100 MILLIGRAM, ONCE A DAY
     Route: 065
  28. ETOPOSIDE. [Suspect]
     Active Substance: ETOPOSIDE
     Indication: CHEMOTHERAPY
     Dosage: UNK, QCYCLE; UNSPECIFIED, CTD REGIMEN
     Route: 065
  29. ETOPOSIDE. [Suspect]
     Active Substance: ETOPOSIDE
     Indication: PLASMA CELL MYELOMA
     Dosage: VD-PACE
     Route: 065
  30. MELPHALAN. [Suspect]
     Active Substance: MELPHALAN
     Indication: BONE MARROW CONDITIONING REGIMEN
     Dosage: DOSAGE FORM: UNSPECIFIED
     Route: 065
     Dates: start: 201703

REACTIONS (27)
  - Plasma cell myeloma [Fatal]
  - Herpes zoster [Fatal]
  - Plasma cell leukaemia [Fatal]
  - Acute sinusitis [Fatal]
  - Nasal abscess [Fatal]
  - Oral fungal infection [Fatal]
  - Mucosal inflammation [Fatal]
  - Pneumonia fungal [Fatal]
  - Pain [Fatal]
  - Malignant neoplasm progression [Fatal]
  - Gastrointestinal fungal infection [Fatal]
  - Sinus polyp [Fatal]
  - Candida infection [Fatal]
  - Varicella zoster virus infection [Fatal]
  - Fungal infection [Fatal]
  - Bacterial sepsis [Recovering/Resolving]
  - Enterococcal sepsis [Fatal]
  - Abscess [Fatal]
  - Fungal oesophagitis [Fatal]
  - Sinusitis [Fatal]
  - Oral disorder [Fatal]
  - Pancytopenia [Fatal]
  - Pulmonary mycosis [Fatal]
  - Mucosal erosion [Fatal]
  - Sepsis [Fatal]
  - Disease progression [Fatal]
  - Enterococcal infection [Unknown]

NARRATIVE: CASE EVENT DATE: 2017
